FAERS Safety Report 6779914-3 (Version None)
Quarter: 2010Q2

REPORT INFORMATION
  Report Type: 
  Country: None (occurrence: None)
  Receive Date: 20100618
  Receipt Date: 20100610
  Transmission Date: 20101027
  Serious: Yes (Hospitalization)
  Sender: FDA-Public Use
  Company Number: US-MERCK-1006USA01693

PATIENT
  Age: 92 Year
  Sex: Male

DRUGS (2)
  1. COZAAR [Suspect]
     Indication: BLOOD PRESSURE
     Route: 048
     Dates: start: 19960101
  2. COZAAR [Suspect]
     Route: 048
     Dates: start: 19970101

REACTIONS (6)
  - ABDOMINAL DISCOMFORT [None]
  - ADVERSE EVENT [None]
  - BLOOD PRESSURE ABNORMAL [None]
  - CHOLELITHIASIS [None]
  - DRUG INEFFECTIVE [None]
  - HEADACHE [None]
